FAERS Safety Report 16904219 (Version 6)
Quarter: 2020Q3

REPORT INFORMATION
  Report Type: Report from Study
  Country: US (occurrence: US)
  Receive Date: 20191010
  Receipt Date: 20200805
  Transmission Date: 20201102
  Serious: Yes (Other)
  Sender: FDA-Public Use
  Company Number: US-TAKEDA-2018TUS006203

PATIENT
  Sex: Female

DRUGS (9)
  1. VALACYCLOVIR HCL [Concomitant]
     Active Substance: VALACYCLOVIR HYDROCHLORIDE
     Dosage: UNK
     Route: 065
  2. BACTRIM [Concomitant]
     Active Substance: SULFAMETHOXAZOLE\TRIMETHOPRIM
     Dosage: UNK
     Route: 065
  3. LAMIVUDINE. [Concomitant]
     Active Substance: LAMIVUDINE
     Dosage: UNK
     Route: 065
     Dates: start: 201902
  4. ALBUTEROL SULFATE. [Concomitant]
     Active Substance: ALBUTEROL SULFATE
     Dosage: UNK
     Route: 065
  5. VANCOMYCIN HCL [Concomitant]
     Active Substance: VANCOMYCIN HYDROCHLORIDE
     Dosage: UNK
     Route: 065
  6. PONATINIB [Suspect]
     Active Substance: PONATINIB
     Indication: CHRONIC MYELOID LEUKAEMIA
     Dosage: 15 MILLIGRAM, QOD
     Route: 048
     Dates: start: 201408
  7. RESTASIS [Concomitant]
     Active Substance: CYCLOSPORINE
     Dosage: UNK
     Route: 065
  8. GABAPENTIN. [Concomitant]
     Active Substance: GABAPENTIN
     Dosage: UNK
     Route: 065
  9. TOBRAMYCIN. [Concomitant]
     Active Substance: TOBRAMYCIN
     Dosage: UNK
     Route: 065

REACTIONS (23)
  - Keratitis fungal [Unknown]
  - Pain in extremity [Unknown]
  - Blindness unilateral [Unknown]
  - Muscular weakness [Unknown]
  - Pigmentation disorder [Unknown]
  - Dry mouth [Unknown]
  - Asthma [Unknown]
  - Graft versus host disease [Unknown]
  - Stress [Unknown]
  - Gait inability [Unknown]
  - Fatigue [Unknown]
  - Neuropathy peripheral [Unknown]
  - Off label use [Unknown]
  - Nerve injury [Unknown]
  - Visual impairment [Unknown]
  - Dry eye [Unknown]
  - Pain [Unknown]
  - Psychotic disorder [Unknown]
  - Epileptic aura [Unknown]
  - Graft versus host disease in eye [Unknown]
  - Malaise [Unknown]
  - Tooth loss [Unknown]
  - Product use complaint [Unknown]
